FAERS Safety Report 10354701 (Version 2)
Quarter: 2014Q3

REPORT INFORMATION
  Report Type: Spontaneous
  Country: JP (occurrence: None)
  Receive Date: 20140729
  Receipt Date: 20140822
  Transmission Date: 20150326
  Serious: Yes (Other)
  Sender: FDA-Public Use
  Company Number: 2014JP006112

PATIENT
  Age: 43 Year
  Sex: Male

DRUGS (12)
  1. PROCAINE HYDROCHLORIDE (PROCAINE HYDROCHLORIDE) [Concomitant]
  2. MAGLAX (MAGNESIUM OXIDE) [Concomitant]
     Active Substance: MAGNESIUM OXIDE
  3. LYRICA [Concomitant]
     Active Substance: PREGABALIN
  4. REGNITE (GABAPENTIN ENACARBIL) TABLET, 300MG [Suspect]
     Active Substance: GABAPENTIN ENACARBIL
     Indication: RESTLESS LEGS SYNDROME
     Route: 048
     Dates: start: 20130313, end: 20130514
  5. ASACOL (MESALAZINE) [Concomitant]
  6. CYMBALTA [Suspect]
     Active Substance: DULOXETINE HYDROCHLORIDE
     Indication: FIBROMYALGIA
     Route: 048
     Dates: start: 20130422, end: 20130427
  7. HALCION (TRIAZOLAM) [Concomitant]
  8. RIVOTRIL [Concomitant]
     Active Substance: CLONAZEPAM
  9. MYSLEE (ZOLPIDEM TARTRATE) [Concomitant]
  10. DEPAKENE (VALPROIC ACID) [Concomitant]
  11. METHYCOBAL (MECOBALAMIN) [Concomitant]
  12. NEUROTROPIN (CYANOCOBALAMIN, LIDOCAINE HYDROCHLORIDE, PYRIDOXINE HYDROCHLORIDE, THIAMINE HYDROCHLORIDE) [Concomitant]

REACTIONS (3)
  - Dizziness [None]
  - Urticaria [None]
  - Fatigue [None]

NARRATIVE: CASE EVENT DATE: 20130422
